FAERS Safety Report 19922279 (Version 1)
Quarter: 2021Q4

REPORT INFORMATION
  Report Type: Spontaneous
  Country: US (occurrence: US)
  Receive Date: 20211005
  Receipt Date: 20211005
  Transmission Date: 20220303
  Serious: No
  Sender: FDA-Public Use
  Company Number: None

PATIENT
  Age: 50 Year
  Sex: Male
  Weight: 54.4 kg

DRUGS (1)
  1. GAMUNEX-C [Suspect]
     Active Substance: HUMAN IMMUNOGLOBULIN G
     Indication: Chronic inflammatory demyelinating polyradiculoneuropathy
     Dosage: ?          OTHER FREQUENCY:MONTHLY;
     Route: 042
     Dates: start: 20210810

REACTIONS (2)
  - Vision blurred [None]
  - Hypertension [None]

NARRATIVE: CASE EVENT DATE: 20210927
